FAERS Safety Report 8217030-4 (Version None)
Quarter: 2012Q1

REPORT INFORMATION
  Report Type: 
  Country: None (occurrence: None)
  Receive Date: 20120319
  Receipt Date: 20120309
  Transmission Date: 20120608
  Serious: No
  Sender: FDA-Public Use
  Company Number: US-BIOGENIDEC-2012BI008701

PATIENT
  Age: 50 Year
  Sex: Female

DRUGS (2)
  1. AVONEX [Suspect]
     Indication: MULTIPLE SCLEROSIS
     Route: 030
     Dates: start: 20090817, end: 20111105
  2. MACROBID [Concomitant]
     Indication: PROPHYLAXIS URINARY TRACT INFECTION
     Route: 048

REACTIONS (3)
  - MOBILITY DECREASED [None]
  - FOOT FRACTURE [None]
  - HYPOAESTHESIA [None]
